FAERS Safety Report 9257172 (Version 1)
Quarter: 2013Q1

REPORT INFORMATION
  Report Type: Spontaneous
  Country: US (occurrence: None)
  Receive Date: 20121212
  Receipt Date: 20121212
  Transmission Date: 20140127
  Serious: Yes (Hospitalization, Other)
  Sender: FDA-Public Use
  Company Number: 2011SP048673

PATIENT
  Age: 57 Year
  Sex: Female

DRUGS (4)
  1. REBETOL [Suspect]
     Indication: HEPATITIS C
     Dosage: UNK, UNK, UNKNOWN, UNKNOWN
     Dates: start: 20110718, end: 20111226
  2. VICTRELIS [Suspect]
     Indication: HEPATITIS C
     Dosage: UNK, UNK, UNKNOWN, UNKNOWN
     Dates: start: 20110824, end: 20111223
  3. PEGASYS [Suspect]
     Indication: HEPATITIS C
     Dosage: UNK, UNK, UNKNOWN, UNKNOWN
     Dates: start: 20110718
  4. METHOTREXATE (METHOTREXATE) [Concomitant]

REACTIONS (6)
  - Anaemia [None]
  - Weight increased [None]
  - Dysgeusia [None]
  - Dyspnoea [None]
  - Fatigue [None]
  - Nausea [None]
